FAERS Safety Report 12936989 (Version 2)
Quarter: 2016Q4

REPORT INFORMATION
  Report Type: Spontaneous
  Country: JP (occurrence: JP)
  Receive Date: 20161114
  Receipt Date: 20161128
  Transmission Date: 20170207
  Serious: Yes (Other)
  Sender: FDA-Public Use
  Company Number: JP-ELI_LILLY_AND_COMPANY-JP201611001524

PATIENT
  Age: 75 Year
  Sex: Male

DRUGS (1)
  1. GEMZAR [Suspect]
     Active Substance: GEMCITABINE HYDROCHLORIDE
     Indication: PRODUCT USED FOR UNKNOWN INDICATION
     Route: 042

REACTIONS (5)
  - Malignant neoplasm progression [Unknown]
  - Decreased appetite [Not Recovered/Not Resolved]
  - Disseminated intravascular coagulation [Unknown]
  - Asthenia [Not Recovered/Not Resolved]
  - Tumour lysis syndrome [Unknown]
